FAERS Safety Report 6509453-6 (Version None)
Quarter: 2009Q4

REPORT INFORMATION
  Report Type: 
  Country: None (occurrence: None)
  Receive Date: 20091222
  Receipt Date: 20091217
  Transmission Date: 20100525
  Serious: Yes (Life-Threatening, Hospitalization)
  Sender: FDA-Public Use
  Company Number: JP-TYCO HEALTHCARE/MALLINCKRODT-T200902230

PATIENT
  Age: 72 Year
  Sex: Female
  Weight: 52 kg

DRUGS (3)
  1. OPTIRAY 350 [Suspect]
     Indication: COMPUTERISED TOMOGRAM
     Dosage: 100 ML, SINGLE
     Route: 042
     Dates: start: 20091126, end: 20091126
  2. TRASTUZUMAB [Concomitant]
     Indication: BREAST CANCER
     Dosage: 104.8 MG, QD
     Route: 042
  3. VINORELBINE [Concomitant]
     Indication: BREAST CANCER
     Dosage: 36.625 MG, QD
     Route: 042

REACTIONS (1)
  - ANAPHYLACTIC SHOCK [None]
